FAERS Safety Report 7515809-5 (Version None)
Quarter: 2011Q2

REPORT INFORMATION
  Report Type: 
  Country: None (occurrence: None)
  Receive Date: 20110425
  Receipt Date: 20101105
  Transmission Date: 20111010
  Serious: Yes (Hospitalization)
  Sender: FDA-Public Use
  Company Number: MC201000344

PATIENT

DRUGS (2)
  1. ANGIOMAX [Suspect]
     Indication: PRODUCT USED FOR UNKNOWN INDICATION
  2. INTEGRILIN [Suspect]
     Indication: PRODUCT USED FOR UNKNOWN INDICATION

REACTIONS (2)
  - GINGIVAL BLEEDING [None]
  - HAEMORRHAGE [None]
